FAERS Safety Report 17153839 (Version 2)
Quarter: 2020Q1

REPORT INFORMATION
  Report Type: Spontaneous
  Country: US (occurrence: US)
  Receive Date: 20191213
  Receipt Date: 20200207
  Transmission Date: 20200409
  Serious: No
  Sender: FDA-Public Use
  Company Number: US-BAUSCH-BL-2019-061440

PATIENT
  Age: 43 Year
  Sex: Male
  Weight: 95.34 kg

DRUGS (2)
  1. DUOBRII [Suspect]
     Active Substance: HALOBETASOL PROPIONATE\TAZAROTENE
     Indication: PSORIASIS
     Dosage: STRENGTH: 0.01/0.045 PERCENT?APPROXIMATELY 3 WEEKS AGO ONE DAILY ON BOTH KNEES AND BOTH ELBOWS
     Route: 061
     Dates: start: 2019, end: 2019
  2. TACROLIMUS. [Concomitant]
     Active Substance: TACROLIMUS
     Indication: PRODUCT USED FOR UNKNOWN INDICATION

REACTIONS (4)
  - Application site exfoliation [Recovering/Resolving]
  - Application site laceration [Unknown]
  - Drug ineffective [Unknown]
  - Rash erythematous [Recovering/Resolving]

NARRATIVE: CASE EVENT DATE: 2019
